FAERS Safety Report 4838006-0 (Version None)
Quarter: 2005Q4

REPORT INFORMATION
  Report Type: 
  Country: None (occurrence: None)
  Receive Date: 20051128
  Receipt Date: 20051117
  Transmission Date: 20060501
  Serious: Yes (Other)
  Sender: FDA-Public Use
  Company Number: JP-JNJFOC-20051104474

PATIENT
  Sex: Female
  Weight: 62 kg

DRUGS (23)
  1. REMICADE [Suspect]
     Route: 042
  2. REMICADE [Suspect]
     Route: 042
  3. REMICADE [Suspect]
     Route: 042
  4. REMICADE [Suspect]
     Route: 042
  5. REMICADE [Suspect]
     Route: 042
  6. REMICADE [Suspect]
     Route: 042
  7. REMICADE [Suspect]
     Route: 042
  8. REMICADE [Suspect]
     Route: 042
  9. REMICADE [Suspect]
     Route: 042
  10. REMICADE [Suspect]
     Indication: RHEUMATOID ARTHRITIS
     Route: 042
  11. RHEUMATREX [Concomitant]
     Route: 048
  12. RHEUMATREX [Concomitant]
     Route: 048
  13. RHEUMATREX [Concomitant]
     Indication: RHEUMATOID ARTHRITIS
     Route: 048
  14. ALESION [Concomitant]
     Indication: PREMEDICATION
     Route: 048
  15. ADRENAL HORMONE PREPARATIONS [Concomitant]
     Indication: RHEUMATOID ARTHRITIS
  16. PREDNISOLONE [Concomitant]
  17. PREDNISOLONE [Concomitant]
     Indication: RHEUMATOID ARTHRITIS
  18. SOLETON [Concomitant]
     Route: 048
  19. SOLETON [Concomitant]
     Indication: RHEUMATOID ARTHRITIS
     Route: 048
  20. LEUCOVORIN [Concomitant]
     Route: 048
  21. SELBEX [Concomitant]
     Route: 048
  22. SELBEX [Concomitant]
     Route: 048
  23. PREDONINE [Concomitant]
     Indication: RHEUMATOID ARTHRITIS
     Route: 048

REACTIONS (4)
  - BLOOD PRESSURE INCREASED [None]
  - CHILLS [None]
  - INFUSION RELATED REACTION [None]
  - TREMOR [None]
